FAERS Safety Report 14767719 (Version 1)
Quarter: 2018Q2

REPORT INFORMATION
  Report Type: Spontaneous
  Country: US (occurrence: US)
  Receive Date: 20180417
  Receipt Date: 20180417
  Transmission Date: 20180711
  Serious: No
  Sender: FDA-Public Use
  Company Number: US-009507513-1804USA000751

PATIENT
  Age: 23 Year
  Sex: Female
  Weight: 48.53 kg

DRUGS (1)
  1. NEXPLANON [Suspect]
     Active Substance: ETONOGESTREL
     Indication: CONTRACEPTION
     Dosage: ONE THREE YEAR IMPLANT, IN LEFT ARM
     Route: 059
     Dates: start: 20151016

REACTIONS (4)
  - Pain in extremity [Unknown]
  - Menstruation irregular [Recovering/Resolving]
  - Menorrhagia [Recovered/Resolved]
  - Rash erythematous [Unknown]

NARRATIVE: CASE EVENT DATE: 20151016
